FAERS Safety Report 12211493 (Version 2)
Quarter: 2016Q2

REPORT INFORMATION
  Report Type: Spontaneous
  Country: None (occurrence: US)
  Receive Date: 20160325
  Receipt Date: 20160408
  Transmission Date: 20160815
  Serious: Yes (Hospitalization)
  Sender: FDA-Public Use
  Company Number: US-FLEET LABORATORIES-1049714

PATIENT
  Age: 54 Year
  Sex: Male
  Weight: 135 kg

DRUGS (1)
  1. PHAZYME [Suspect]
     Active Substance: DIMETHICONE 410
     Indication: FLATULENCE
     Route: 048
     Dates: start: 20160306, end: 20160306

REACTIONS (7)
  - Throat tightness [Recovered/Resolved]
  - Dizziness [Recovered/Resolved]
  - Chest pain [Recovered/Resolved]
  - Rash erythematous [Recovered/Resolved]
  - Hypersensitivity [Recovered/Resolved]
  - Loss of consciousness [Recovered/Resolved]
  - Dyspnoea [Recovered/Resolved]

NARRATIVE: CASE EVENT DATE: 20160306
